FAERS Safety Report 6554789-6 (Version None)
Quarter: 2010Q1

REPORT INFORMATION
  Report Type: 
  Country: None (occurrence: None)
  Receive Date: 20100127
  Receipt Date: 20100114
  Transmission Date: 20100710
  Serious: No
  Sender: FDA-Public Use
  Company Number: US-ASTRAZENECA-2010SE01674

PATIENT
  Sex: Female

DRUGS (5)
  1. LISINOPRIL [Suspect]
     Indication: BLOOD PRESSURE
     Route: 048
  2. LISINOPRIL [Suspect]
     Indication: BLOOD CHOLESTEROL
     Route: 048
  3. GEMFIBROZIL [Concomitant]
     Indication: BLOOD PRESSURE
  4. GEMFIBROZIL [Concomitant]
     Indication: BLOOD CHOLESTEROL
  5. QUININE SULFATE [Concomitant]
     Indication: SYSTEMIC LUPUS ERYTHEMATOSUS

REACTIONS (2)
  - CEREBROVASCULAR ACCIDENT [None]
  - DRUG DOSE OMISSION [None]
